FAERS Safety Report 7851782-8 (Version None)
Quarter: 2011Q4

REPORT INFORMATION
  Report Type: 
  Country: None (occurrence: None)
  Receive Date: 20111013
  Receipt Date: 20111006
  Transmission Date: 20120403
  Serious: Yes (Other)
  Sender: FDA-Public Use
  Company Number: 2011030013

PATIENT
  Sex: Male
  Weight: 104.3273 kg

DRUGS (7)
  1. COMBIVENT [Concomitant]
  2. LOSARTAN POTASSIUM [Concomitant]
  3. ZEMAIRA [Suspect]
     Indication: ALPHA-1 ANTI-TRYPSIN DEFICIENCY
     Dosage: (60 MG/KG 1X/WEEK, AT MAX RATE OF 8.3 ML PER MIN INTRAVENOUS (NOT OTHERWISE SPECIFIED))
     Route: 042
     Dates: start: 20110912
  4. ZEMAIRA [Suspect]
     Indication: EMPHYSEMA
     Dosage: (60 MG/KG 1X/WEEK, AT MAX RATE OF 8.3 ML PER MIN INTRAVENOUS (NOT OTHERWISE SPECIFIED))
     Route: 042
     Dates: start: 20110912
  5. MULTIVITAMIN (DAILY MULTIVITAMIN) [Concomitant]
  6. PROVENTIL HFA (SALBUTAMOL) [Concomitant]
  7. METOPROLOL SUCCINATE [Concomitant]

REACTIONS (5)
  - RASH [None]
  - DYSPNOEA [None]
  - NASAL OEDEMA [None]
  - FEELING ABNORMAL [None]
  - THROAT TIGHTNESS [None]
